FAERS Safety Report 7800415-5 (Version None)
Quarter: 2011Q4

REPORT INFORMATION
  Report Type: 
  Country: None (occurrence: None)
  Receive Date: 20111004
  Receipt Date: 20110929
  Transmission Date: 20120403
  Serious: Yes (Other)
  Sender: FDA-Public Use
  Company Number: GER/UKI/11/0021388

PATIENT
  Age: 46 Year
  Sex: Male

DRUGS (5)
  1. PREGABALIN [Concomitant]
  2. FLOXACILLIN SODIUM [Concomitant]
  3. OMEPRAZOLE [Concomitant]
  4. INFUMORPH [Concomitant]
  5. NAPROXEN [Suspect]
     Indication: PRODUCT USED FOR UNKNOWN INDICATION
     Dates: start: 20110603

REACTIONS (1)
  - PSEUDOPORPHYRIA [None]
